FAERS Safety Report 16795207 (Version 2)
Quarter: 2019Q3

REPORT INFORMATION
  Report Type: Spontaneous
  Country: FR (occurrence: FR)
  Receive Date: 20190911
  Receipt Date: 20190919
  Transmission Date: 20191005
  Serious: Yes (Other)
  Sender: FDA-Public Use
  Company Number: FR-PFIZER INC-2019393422

PATIENT
  Age: 90 Year
  Sex: Male
  Weight: 72 kg

DRUGS (1)
  1. TAFAMIDIS MEGLUMINE [Suspect]
     Active Substance: TAFAMIDIS MEGLUMINE
     Dosage: 20 MG, 1X/DAY
     Dates: end: 20190906

REACTIONS (3)
  - Cardiac failure chronic [Unknown]
  - Disease progression [Unknown]
  - Hereditary neuropathic amyloidosis [Unknown]
